FAERS Safety Report 8054072-6 (Version None)
Quarter: 2012Q1

REPORT INFORMATION
  Report Type: 
  Country: None (occurrence: None)
  Receive Date: 20120118
  Receipt Date: 20120111
  Transmission Date: 20120608
  Serious: Yes (Hospitalization)
  Sender: FDA-Public Use
  Company Number: US-US-EMD SERONO, INC.-7054981

PATIENT
  Sex: Female
  Weight: 70 kg

DRUGS (3)
  1. REBIF [Suspect]
     Indication: MULTIPLE SCLEROSIS
     Route: 058
     Dates: start: 20100108, end: 20111001
  2. BACLOFEN [Concomitant]
  3. ALBUTEROL [Concomitant]
     Indication: ASTHMA

REACTIONS (4)
  - FATIGUE [None]
  - MULTIPLE SCLEROSIS RELAPSE [None]
  - TOOTH INFECTION [None]
  - CYSTITIS [None]
